FAERS Safety Report 10477362 (Version 1)
Quarter: 2014Q3

REPORT INFORMATION
  Report Type: Spontaneous
  Country: US (occurrence: None)
  Receive Date: 20140925
  Receipt Date: 20140925
  Transmission Date: 20150326
  Serious: No
  Sender: FDA-Public Use
  Company Number: None

PATIENT
  Age: 82 Year
  Sex: Female

DRUGS (1)
  1. FORTEO [Suspect]
     Active Substance: TERIPARATIDE
     Dates: start: 20140804, end: 20140906

REACTIONS (3)
  - Pruritus [None]
  - Hypersensitivity [None]
  - Flushing [None]

NARRATIVE: CASE EVENT DATE: 20140905
